FAERS Safety Report 8424175-2 (Version None)
Quarter: 2012Q2

REPORT INFORMATION
  Report Type: 
  Country: None (occurrence: None)
  Receive Date: 20120608
  Receipt Date: 20120327
  Transmission Date: 20120825
  Serious: No
  Sender: FDA-Public Use
  Company Number: US-ASTRAZENECA-2012SE15558

PATIENT
  Age: 53 Year
  Sex: Male
  Weight: 86.2 kg

DRUGS (5)
  1. SEREVENT [Concomitant]
     Indication: ASTHMA
  2. SINGULAIR [Concomitant]
     Indication: ASTHMA
  3. CLOTRIMAZOLE [Concomitant]
     Indication: ORAL CANDIDIASIS
  4. LISINOPRIL [Concomitant]
     Indication: HYPERTENSION
  5. PULMICORT FLEXHALER [Suspect]
     Indication: ASTHMA
     Dosage: 180 MCG, 1 PUFF TWICE A DAY
     Route: 055

REACTIONS (4)
  - OFF LABEL USE [None]
  - CIRCUMSTANCE OR INFORMATION CAPABLE OF LEADING TO MEDICATION ERROR [None]
  - MALAISE [None]
  - ORAL CANDIDIASIS [None]
